FAERS Safety Report 5234053-8 (Version None)
Quarter: 2007Q1

REPORT INFORMATION
  Report Type: 
  Country: None (occurrence: None)
  Receive Date: 20070208
  Receipt Date: 20070129
  Transmission Date: 20070707
  Serious: Yes (Hospitalization, Other)
  Sender: FDA-Public Use
  Company Number: BR-PFIZER INC-2006153655

PATIENT
  Sex: Male

DRUGS (5)
  1. LIPITOR [Suspect]
     Indication: DYSLIPIDAEMIA
     Route: 048
  2. AMLODIPINE [Concomitant]
     Route: 048
  3. PROPRANOLOL [Concomitant]
     Route: 065
  4. CELLCEPT [Concomitant]
     Route: 048
  5. PROGRAF [Concomitant]
     Route: 065

REACTIONS (18)
  - ABDOMINAL INFECTION [None]
  - ASTHENIA [None]
  - BLOOD CREATININE INCREASED [None]
  - BLOOD TRIGLYCERIDES INCREASED [None]
  - DRUG TOXICITY [None]
  - GASTRIC INFECTION [None]
  - GASTROINTESTINAL CARCINOMA [None]
  - GASTROINTESTINAL INFECTION [None]
  - GASTROINTESTINAL NEOPLASM [None]
  - IMMUNE SYSTEM DISORDER [None]
  - INFECTION [None]
  - INFECTION IN AN IMMUNOCOMPROMISED HOST [None]
  - INTESTINAL MASS [None]
  - LEUKOPENIA [None]
  - OSTEOMYELITIS [None]
  - RENAL TRANSPLANT [None]
  - TRANSPLANT REJECTION [None]
  - WEIGHT DECREASED [None]
